FAERS Safety Report 10610070 (Version 1)
Quarter: 2014Q4

REPORT INFORMATION
  Report Type: Spontaneous
  Country: US (occurrence: US)
  Receive Date: 20141126
  Receipt Date: 20141126
  Transmission Date: 20150529
  Serious: No
  Sender: FDA-Public Use
  Company Number: US-PFIZER INC-2014323586

PATIENT
  Age: 62 Year
  Sex: Male
  Weight: 64 kg

DRUGS (12)
  1. TAMSULOSIN [Concomitant]
     Active Substance: TAMSULOSIN
     Indication: BENIGN PROSTATIC HYPERPLASIA
     Dosage: 0.4 MG, 1X/DAY
  2. TRIHEXYPHENIDYL [Concomitant]
     Active Substance: TRIHEXYPHENIDYL
     Indication: NEUROMYOPATHY
     Dosage: 2 MG, 3X/DAY
  3. ESCITALOPRAM [Concomitant]
     Active Substance: ESCITALOPRAM OXALATE
     Indication: DEPRESSION
     Dosage: 10 MG, 1X/DAY
     Route: 048
  4. LORAZEPAN LACEFA [Concomitant]
     Indication: ANXIETY
     Dosage: 1 MG, NO MORE THAN 2X/DAY
  5. ZIPRASIDONE HCL [Suspect]
     Active Substance: ZIPRASIDONE HYDROCHLORIDE
     Indication: DEPRESSION
     Dosage: 1 DF, 2X/DAY
  6. ZIPRASIDONE HCL [Suspect]
     Active Substance: ZIPRASIDONE HYDROCHLORIDE
     Dosage: 2 DF, 1X/DAY
  7. LEXAPRO [Concomitant]
     Active Substance: ESCITALOPRAM OXALATE
     Indication: DEPRESSION
     Dosage: 10 MG, DAILY
  8. TRAMADOL [Concomitant]
     Active Substance: TRAMADOL
     Indication: PAIN
     Dosage: 50 MG, AS NEEDED
  9. FOLIC ACID. [Concomitant]
     Active Substance: FOLIC ACID
     Dosage: 1 DF, DAILY
  10. NAPROXEN. [Concomitant]
     Active Substance: NAPROXEN
     Indication: PAIN
     Dosage: 250 MG, 2X/DAY AS NEEDED
  11. CARBIDOPA + L-DOPA [Concomitant]
     Active Substance: CARBIDOPA\LEVODOPA
     Indication: NEUROMYOPATHY
     Dosage: [CARBIDOPA 25 MG]/LEVODOPA 250MG], 1 DF, 3X/DAY
  12. VITAMIN B12 [Concomitant]
     Active Substance: CYANOCOBALAMIN
     Dosage: UNK

REACTIONS (2)
  - Intentional product misuse [Unknown]
  - Somnolence [Unknown]
